FAERS Safety Report 7476249-0 (Version None)
Quarter: 2011Q2

REPORT INFORMATION
  Report Type: 
  Country: None (occurrence: None)
  Receive Date: 20110512
  Receipt Date: 20110223
  Transmission Date: 20111010
  Serious: Yes (Hospitalization, Other)
  Sender: FDA-Public Use
  Company Number: PHHY2011IT37354

PATIENT
  Sex: Female

DRUGS (4)
  1. NORVASC [Concomitant]
     Dosage: 5 MG, UNK
     Route: 048
     Dates: start: 20050101, end: 20101105
  2. VALSARTAN [Suspect]
     Indication: HYPERTENSION
     Dosage: 80 MG DAILY
     Dates: start: 20101022, end: 20101029
  3. BISOPROLOL FUMARATE [Concomitant]
     Dosage: 2.5 MG, UNK
     Route: 048
     Dates: start: 20050101, end: 20101105
  4. METFORMIN HCL [Concomitant]
     Dosage: 1000 MG, UNK
     Route: 048
     Dates: start: 20050101, end: 20101105

REACTIONS (6)
  - HEART RATE INCREASED [None]
  - BLOOD PRESSURE INCREASED [None]
  - PETECHIAE [None]
  - PROTHROMBIN TIME PROLONGED [None]
  - ECCHYMOSIS [None]
  - PLATELET COUNT DECREASED [None]
